FAERS Safety Report 25721187 (Version 1)
Quarter: 2025Q3

REPORT INFORMATION
  Report Type: Spontaneous
  Country: US (occurrence: None)
  Receive Date: 20250822
  Receipt Date: 20250822
  Transmission Date: 20251020
  Serious: No
  Sender: FDA-CTU
  Company Number: None

PATIENT
  Age: 80 Year
  Sex: Male
  Weight: 65.25 kg

DRUGS (10)
  1. EZETIMIBE [Suspect]
     Active Substance: EZETIMIBE
     Indication: Blood cholesterol increased
     Dosage: OTHER QUANTITY : 1 TABLET(S);?FREQUENCY : AT BEDTIME;?
     Route: 048
  2. SYNTHROID [Concomitant]
     Active Substance: LEVOTHYROXINE SODIUM
  3. EZETIMIBE [Concomitant]
     Active Substance: EZETIMIBE
  4. METOPROLOL SUCCINATE [Concomitant]
     Active Substance: METOPROLOL SUCCINATE
  5. TICAGRELOR [Concomitant]
     Active Substance: TICAGRELOR
  6. ATORVASTATIN [Concomitant]
     Active Substance: ATORVASTATIN
  7. LOW DOSE ASPIRIN [Concomitant]
     Active Substance: ASPIRIN
  8. COENZYME Q10 [Concomitant]
     Active Substance: DIETARY SUPPLEMENT\UBIDECARENONE
  9. MacuHealth [Concomitant]
  10. PROBIOTICS NOS [Concomitant]
     Active Substance: PROBIOTICS NOS

REACTIONS (5)
  - Paraesthesia [None]
  - Hypoaesthesia [None]
  - Hypoaesthesia [None]
  - Peripheral coldness [None]
  - Hypoaesthesia [None]

NARRATIVE: CASE EVENT DATE: 20250622
